FAERS Safety Report 13237603 (Version 2)
Quarter: 2017Q1

REPORT INFORMATION
  Report Type: Report from Study
  Country: US (occurrence: US)
  Receive Date: 20170215
  Receipt Date: 20170221
  Transmission Date: 20170428
  Serious: Yes (Hospitalization)
  Sender: FDA-Public Use
  Company Number: US-BRISTOL-MYERS SQUIBB COMPANY-BMS-2017-011937

PATIENT
  Age: 82 Year
  Sex: Male
  Weight: 111.1 kg

DRUGS (15)
  1. NIVOLUMAB [Suspect]
     Active Substance: NIVOLUMAB
     Indication: PRODUCT USED FOR UNKNOWN INDICATION
     Dosage: 1 DF, TOTAL
     Route: 065
     Dates: start: 20161020, end: 20161020
  2. NIVOLUMAB [Suspect]
     Active Substance: NIVOLUMAB
     Indication: PRODUCT USED FOR UNKNOWN INDICATION
     Dosage: 1 DF, TOTAL
     Route: 065
     Dates: start: 20161201, end: 20161201
  3. NIVOLUMAB [Suspect]
     Active Substance: NIVOLUMAB
     Indication: PRODUCT USED FOR UNKNOWN INDICATION
     Dosage: 1 DF, TOTAL
     Route: 065
     Dates: start: 20170119, end: 20170119
  4. PEMETREXED DISODIUM [Suspect]
     Active Substance: PEMETREXED DISODIUM
     Indication: PRODUCT USED FOR UNKNOWN INDICATION
     Dosage: 1 DF, TOTAL
     Route: 065
     Dates: start: 20161110, end: 20161110
  5. PEMETREXED DISODIUM [Suspect]
     Active Substance: PEMETREXED DISODIUM
     Indication: PRODUCT USED FOR UNKNOWN INDICATION
     Dosage: 1 DF, TOTAL
     Route: 065
     Dates: start: 20161201, end: 20161201
  6. PEMETREXED DISODIUM [Suspect]
     Active Substance: PEMETREXED DISODIUM
     Indication: PRODUCT USED FOR UNKNOWN INDICATION
     Dosage: 1 DF, TOTAL
     Route: 065
     Dates: start: 20161229, end: 20161229
  7. NIVOLUMAB [Suspect]
     Active Substance: NIVOLUMAB
     Indication: PRODUCT USED FOR UNKNOWN INDICATION
     Dosage: 1 DF, TOTAL
     Route: 065
     Dates: start: 20161110, end: 20161110
  8. IMODIUM [Concomitant]
     Active Substance: LOPERAMIDE HYDROCHLORIDE
     Indication: DIARRHOEA
     Dosage: 2 MG, UNK
     Route: 048
     Dates: start: 20170110
  9. NIVOLUMAB [Suspect]
     Active Substance: NIVOLUMAB
     Indication: NON-SMALL CELL LUNG CANCER
     Dosage: 1 DF, TOTAL
     Route: 065
     Dates: start: 20160908, end: 20160908
  10. NIVOLUMAB [Suspect]
     Active Substance: NIVOLUMAB
     Indication: PRODUCT USED FOR UNKNOWN INDICATION
     Dosage: 1 DF, TOTAL
     Route: 065
     Dates: start: 20160929, end: 20160929
  11. PEMETREXED DISODIUM [Suspect]
     Active Substance: PEMETREXED DISODIUM
     Indication: NON-SMALL CELL LUNG CANCER
     Dosage: 1 DF, TOTAL
     Route: 065
     Dates: start: 20160908, end: 20160908
  12. PEMETREXED DISODIUM [Suspect]
     Active Substance: PEMETREXED DISODIUM
     Indication: PRODUCT USED FOR UNKNOWN INDICATION
     Dosage: 1 DF, TOTAL
     Route: 065
     Dates: start: 20161020, end: 20161020
  13. PEMETREXED DISODIUM [Suspect]
     Active Substance: PEMETREXED DISODIUM
     Indication: PRODUCT USED FOR UNKNOWN INDICATION
     Dosage: 1 DF, TOTAL
     Route: 065
     Dates: start: 20170119, end: 20170119
  14. NIVOLUMAB [Suspect]
     Active Substance: NIVOLUMAB
     Indication: PRODUCT USED FOR UNKNOWN INDICATION
     Dosage: 1 DF, TOTAL
     Route: 065
     Dates: start: 20161229, end: 20161229
  15. PEMETREXED DISODIUM [Suspect]
     Active Substance: PEMETREXED DISODIUM
     Indication: PRODUCT USED FOR UNKNOWN INDICATION
     Dosage: 1 DF, TOTAL
     Route: 065
     Dates: start: 20160929, end: 20160929

REACTIONS (2)
  - Hypotension [Recovered/Resolved]
  - Colitis [Recovered/Resolved with Sequelae]

NARRATIVE: CASE EVENT DATE: 20170206
